FAERS Safety Report 9053921 (Version 1)
Quarter: 2013Q1

REPORT INFORMATION
  Report Type: Spontaneous
  Country: US (occurrence: None)
  Receive Date: 20130201
  Receipt Date: 20130201
  Transmission Date: 20140127
  Serious: No
  Sender: FDA-Public Use
  Company Number: None

PATIENT
  Sex: Male
  Weight: 88.45 kg

DRUGS (1)
  1. STELARA [Suspect]
     Indication: RASH
     Dates: start: 201211

REACTIONS (2)
  - Rash [None]
  - Eczema [None]
